FAERS Safety Report 7512940-5 (Version None)
Quarter: 2011Q2

REPORT INFORMATION
  Report Type: 
  Country: None (occurrence: None)
  Receive Date: 20110531
  Receipt Date: 20101201
  Transmission Date: 20111010
  Serious: No
  Sender: FDA-Public Use
  Company Number: US-NOVEN-ALL1-2010-06196

PATIENT
  Sex: Male
  Weight: 23.129 kg

DRUGS (2)
  1. GUANFACINE HYDROCHLORIDE [Concomitant]
     Dosage: 0.5 MG, 2X/DAY:BID(HALF OF A 1 MG TABLET BID)
     Route: 048
     Dates: start: 20090101
  2. DAYTRANA [Suspect]
     Dosage: 15 MG, 1X/DAY:QD
     Route: 062
     Dates: start: 20080101

REACTIONS (5)
  - APPLICATION SITE REACTION [None]
  - APPLICATION SITE RASH [None]
  - APPLICATION SITE ERYTHEMA [None]
  - APPLICATION SITE PAIN [None]
  - INCORRECT DRUG ADMINISTRATION DURATION [None]
